FAERS Safety Report 5331696-8 (Version None)
Quarter: 2007Q2

REPORT INFORMATION
  Report Type: 
  Country: None (occurrence: None)
  Receive Date: 20070516
  Receipt Date: 20070503
  Transmission Date: 20071010
  Serious: Yes (Other)
  Sender: FDA-Public Use
  Company Number: 4407

PATIENT
  Age: 51 Year
  Sex: Female
  Weight: 68 kg

DRUGS (1)
  1. AMNESTEEM [Suspect]
     Dates: start: 20061208

REACTIONS (2)
  - BREAST CANCER FEMALE [None]
  - NEOPLASM MALIGNANT [None]
